FAERS Safety Report 7570994-4 (Version None)
Quarter: 2011Q2

REPORT INFORMATION
  Report Type: 
  Country: None (occurrence: None)
  Receive Date: 20110624
  Receipt Date: 20110613
  Transmission Date: 20111010
  Serious: Yes (Hospitalization, Other)
  Sender: FDA-Public Use
  Company Number: JP-ROCHE-763820

PATIENT
  Sex: Female
  Weight: 57 kg

DRUGS (17)
  1. OXALIPLATIN [Suspect]
     Route: 041
     Dates: start: 20110426
  2. IRINOTECAN HCL [Concomitant]
     Dosage: DOSAGE IS UNCERTAIN.
     Route: 041
     Dates: start: 20090317
  3. AVASTIN [Suspect]
     Dosage: DOSAGE IS UNCERTAIN.
     Route: 041
     Dates: start: 20110426
  4. DIOVAN [Suspect]
     Dosage: DOSAGE IS UNCERTAIN.
     Route: 048
  5. IRINOTECAN HCL [Concomitant]
     Dosage: DOSAGE IS UNCERTAIN
     Route: 041
     Dates: start: 20090317
  6. OXALIPLATIN [Concomitant]
     Dosage: DOSAGE IS UNCERTAIN.
     Route: 041
     Dates: start: 20100921, end: 20110222
  7. DECADRON [Concomitant]
     Dosage: DOSAGE IS UNCERTAIN.
  8. AVASTIN [Suspect]
     Indication: COLON CANCER
     Route: 041
     Dates: start: 20090317, end: 20100831
  9. AVASTIN [Suspect]
     Route: 041
     Dates: start: 20100921, end: 20110222
  10. FLUOROURACIL [Concomitant]
     Indication: COLON CANCER
     Dosage: DOSAGE IS UNCERTAIN
     Route: 040
     Dates: start: 20090317
  11. PROTECADIN [Concomitant]
     Route: 048
     Dates: start: 20100713
  12. XELODA [Suspect]
     Indication: COLON CANCER METASTATIC
     Dosage: DOSAGE IS UNCERTAIN
     Route: 048
     Dates: start: 20100921, end: 20110222
  13. OXALIPLATIN [Suspect]
     Indication: COLON CANCER
     Dosage: DOSAGE IS UNCERTAIN
     Route: 041
     Dates: start: 20100921, end: 20110222
  14. LEUCOVORIN CALCIUM [Concomitant]
     Dosage: DOSAGE IS UNCERTAIN.
     Route: 041
     Dates: start: 20090317
  15. PROTECADIN [Concomitant]
     Dosage: DOSAGE IS UNCERTAIN.
     Route: 048
     Dates: start: 20100713
  16. FLUOROURACIL [Concomitant]
     Dosage: DOSAGE IS UNCERTAIN
     Route: 041
     Dates: start: 20090317
  17. XELODA [Suspect]
     Dosage: DOSAGE IS UNCERTAIN.
     Route: 048
     Dates: start: 20110426, end: 20110510

REACTIONS (9)
  - BLOOD ALKALINE PHOSPHATASE INCREASED [None]
  - RENAL FAILURE ACUTE [None]
  - GASTRITIS [None]
  - HYPERTENSION [None]
  - LIVER DISORDER [None]
  - DIARRHOEA [None]
  - ANAEMIA [None]
  - VOMITING [None]
  - THYROID ATROPHY [None]
